FAERS Safety Report 5914431-1 (Version None)
Quarter: 2008Q4

REPORT INFORMATION
  Report Type: 
  Country: None (occurrence: None)
  Receive Date: 20081009
  Receipt Date: 20081002
  Transmission Date: 20090506
  Serious: Yes (Hospitalization, Other)
  Sender: FDA-Public Use
  Company Number: US-MERCK-0705USA03628

PATIENT
  Age: 39 Year
  Sex: Female
  Weight: 90 kg

DRUGS (3)
  1. FOSAMAX [Suspect]
     Indication: OSTEOPOROSIS
     Route: 048
     Dates: start: 19950101
  2. FOSAMAX [Suspect]
     Route: 048
     Dates: start: 20000101, end: 20050916
  3. [THERAPY UNSPECIFIED] [Concomitant]
     Route: 065
     Dates: start: 19820101

REACTIONS (44)
  - ANTIPHOSPHOLIPID SYNDROME [None]
  - ANXIETY [None]
  - ARTHRALGIA [None]
  - ARTHROPATHY [None]
  - BLINDNESS [None]
  - CEREBROVASCULAR ACCIDENT [None]
  - CONJUNCTIVITIS INFECTIVE [None]
  - CONNECTIVE TISSUE DISORDER [None]
  - CONSTIPATION [None]
  - CONVULSION [None]
  - CRANIAL NERVE DISORDER [None]
  - DEEP VEIN THROMBOSIS [None]
  - FALL [None]
  - FUNGAL INFECTION [None]
  - HEART RATE INCREASED [None]
  - INSOMNIA [None]
  - LEUKOPENIA [None]
  - MALIGNANT MELANOMA [None]
  - MENINGITIS VIRAL [None]
  - MULTIPLE FRACTURES [None]
  - MUSCULOSKELETAL PAIN [None]
  - NECK PAIN [None]
  - OESOPHAGEAL CANDIDIASIS [None]
  - OPTIC NEURITIS [None]
  - OSTEOMYELITIS [None]
  - OSTEONECROSIS [None]
  - PATELLOFEMORAL PAIN SYNDROME [None]
  - PRESYNCOPE [None]
  - PRURITUS [None]
  - RAYNAUD'S PHENOMENON [None]
  - RECTAL HAEMORRHAGE [None]
  - SCIATICA [None]
  - SICCA SYNDROME [None]
  - SICK SINUS SYNDROME [None]
  - SINUS DISORDER [None]
  - STRESS FRACTURE [None]
  - SYSTEMIC LUPUS ERYTHEMATOSUS [None]
  - TEMPERATURE INTOLERANCE [None]
  - TEMPOROMANDIBULAR JOINT SYNDROME [None]
  - THYROID NEOPLASM [None]
  - TRANSIENT ISCHAEMIC ATTACK [None]
  - VIITH NERVE PARALYSIS [None]
  - VIRAL INFECTION [None]
  - WEIGHT DECREASED [None]
